FAERS Safety Report 23866013 (Version 1)
Quarter: 2024Q2

REPORT INFORMATION
  Report Type: Spontaneous
  Country: NL (occurrence: NL)
  Receive Date: 20240517
  Receipt Date: 20240517
  Transmission Date: 20240716
  Serious: Yes (Death, Hospitalization, Other)
  Sender: FDA-Public Use
  Company Number: NL-CELLTRION INC.-2024NL010802

PATIENT

DRUGS (7)
  1. TRUXIMA [Suspect]
     Active Substance: RITUXIMAB-ABBS
     Indication: Rheumatoid arthritis
     Dosage: 10MG/ML FLACON 50 ML AT 1000 MG, EVERY 1 YEAR
     Dates: start: 2011
  2. METOPROLOL [Concomitant]
     Active Substance: METOPROLOL
     Dosage: TABLET MGA, 50 MG (MILLIGRAM)
  3. CALCIUM CARBONATE\CHOLECALCIFEROL [Concomitant]
     Active Substance: CALCIUM CARBONATE\CHOLECALCIFEROL
     Dosage: ORANGE 500MG/880IE IN SACHET
  4. FOLIC ACID [Concomitant]
     Active Substance: FOLIC ACID
     Dosage: TABLET, 5 MG (MILLIGRAM)
  5. METHOTREXATE [Concomitant]
     Active Substance: METHOTREXATE
     Dosage: 20MG 1X/WEEK
  6. GLUCIENT SR [Concomitant]
     Dosage: TABLET MVA, 500 MG (MILLIGRAM)
  7. LOSARTAN [Concomitant]
     Active Substance: LOSARTAN
     Dosage: TABLET FO, 25 MG (MILLIGRAM)

REACTIONS (3)
  - Respiratory failure [Fatal]
  - Pneumonia [Fatal]
  - Intentional product use issue [Unknown]

NARRATIVE: CASE EVENT DATE: 20220225
